FAERS Safety Report 5764267-X (Version None)
Quarter: 2008Q2

REPORT INFORMATION
  Report Type: 
  Country: None (occurrence: None)
  Receive Date: 20080610
  Receipt Date: 20080603
  Transmission Date: 20081010
  Serious: Yes (Hospitalization)
  Sender: FDA-Public Use
  Company Number: US-GENENTECH-262156

PATIENT
  Sex: Male

DRUGS (3)
  1. AVASTIN [Suspect]
     Indication: MACULAR DEGENERATION
     Dosage: UNK, X3
     Dates: start: 20071031
  2. ZOCOR [Concomitant]
     Indication: DRUG USE FOR UNKNOWN INDICATION
  3. ATACAND [Concomitant]
     Indication: BLOOD PRESSURE

REACTIONS (2)
  - BLOOD PRESSURE INCREASED [None]
  - INTERVERTEBRAL DISC DEGENERATION [None]
